FAERS Safety Report 11447799 (Version 1)
Quarter: 2015Q3

REPORT INFORMATION
  Report Type: Spontaneous
  Country: US (occurrence: US)
  Receive Date: 20150831
  Receipt Date: 20150831
  Transmission Date: 20151125
  Serious: No
  Sender: FDA-Public Use
  Company Number: US-ELI_LILLY_AND_COMPANY-US200904003084

PATIENT
  Age: 22 Year
  Sex: Female
  Weight: 89.34 kg

DRUGS (6)
  1. TRIAMCINOLONE [Concomitant]
     Active Substance: TRIAMCINOLONE
     Indication: PSORIASIS
     Dosage: UNK, AS NEEDED
     Route: 062
  2. ADALIMUMAB [Concomitant]
     Active Substance: ADALIMUMAB
     Indication: PSORIATIC ARTHROPATHY
     Dosage: 40 MG, OTHER
     Dates: start: 20090126, end: 200902
  3. CALCIPOTRIOL [Concomitant]
     Active Substance: CALCIPOTRIENE
     Indication: PSORIASIS
     Dosage: UNK, AS NEEDED
  4. HYDROXYZINE [Concomitant]
     Active Substance: HYDROXYZINE\HYDROXYZINE HYDROCHLORIDE
     Indication: PRURITUS
     Dosage: 25 MG, AS NEEDED
  5. CYMBALTA [Suspect]
     Active Substance: DULOXETINE HYDROCHLORIDE
     Indication: DIABETIC NEUROPATHY
     Dosage: 60 MG, DAILY (1/D)
     Dates: start: 20080308
  6. PREGABALIN. [Concomitant]
     Active Substance: PREGABALIN
     Indication: PSORIATIC ARTHROPATHY
     Dosage: 200 MG, 3/D
     Dates: start: 20080313

REACTIONS (3)
  - Pain [Recovering/Resolving]
  - Diabetic neuropathy [Recovering/Resolving]
  - Neuralgia [Unknown]

NARRATIVE: CASE EVENT DATE: 20090217
